FAERS Safety Report 4839932-9 (Version None)
Quarter: 2005Q4

REPORT INFORMATION
  Report Type: 
  Country: None (occurrence: None)
  Receive Date: 20051129
  Receipt Date: 20050921
  Transmission Date: 20060501
  Serious: Yes (Other)
  Sender: FDA-Public Use
  Company Number: PHEH2005US10575

PATIENT
  Age: 61 Year
  Sex: Female

DRUGS (10)
  1. ZOMETA [Suspect]
     Indication: METASTASES TO BONE
     Dosage: 4 MG EVERY 4 WEEKS
     Dates: start: 20050823, end: 20050920
  2. TAMOXIFEN [Concomitant]
     Indication: BREAST CANCER
     Dosage: 20 MG, QD
     Dates: start: 19970901, end: 20000901
  3. ARIMIDEX [Concomitant]
     Indication: BREAST CANCER
     Dosage: 1 MG, QD
     Dates: start: 20000906, end: 20050531
  4. FASLODEX [Concomitant]
     Indication: BREAST CANCER
     Dosage: 25 MG PER MONTH
     Dates: start: 20050531
  5. AREDIA [Suspect]
     Indication: METASTASES TO BONE
     Dosage: 90 MG, EVERY 4 WEEKS
     Dates: start: 20000906, end: 20050726
  6. ASPIRIN [Concomitant]
     Indication: PAIN IN EXTREMITY
     Dosage: 325 MG, QD
  7. ZIAC [Concomitant]
     Dosage: 20/6.5 MG 1/2 TAB
  8. CELEBREX [Concomitant]
     Indication: BONE PAIN
     Dosage: 200 MG, BID
  9. OXYCONTIN [Concomitant]
     Indication: BONE PAIN
     Dosage: 120 MG, BID
  10. LORTAB [Concomitant]
     Indication: BONE PAIN
     Dosage: 10 MG, EVERY 4 HOURS, PRN

REACTIONS (7)
  - BONE DEBRIDEMENT [None]
  - BONE DISORDER [None]
  - ORAL SOFT TISSUE DISORDER [None]
  - OSTEONECROSIS [None]
  - PAIN [None]
  - PAIN IN JAW [None]
  - TOOTH EXTRACTION [None]
